FAERS Safety Report 8814697 (Version 3)
Quarter: 2012Q4

REPORT INFORMATION
  Report Type: 
  Country: JP (occurrence: JP)
  Receive Date: 20120928
  Receipt Date: 20121024
  Transmission Date: 20130627
  Serious: Yes (Life-Threatening)
  Sender: FDA-Public Use
  Company Number: JP-CUBIST-2012S1000789

PATIENT
  Age: 65 Year
  Sex: Male

DRUGS (4)
  1. CUBICIN [Suspect]
     Indication: STAPHYLOCOCCAL BACTERAEMIA
     Route: 042
     Dates: start: 20120828, end: 20120910
  2. BAYASPIRIN [Concomitant]
     Indication: ANGINA PECTORIS
     Route: 048
  3. PARIET [Concomitant]
     Indication: GASTRIC ULCER
     Route: 048
  4. OLMETEC [Concomitant]
     Indication: HYPERTENSION
     Route: 048

REACTIONS (1)
  - Eosinophilic pneumonia [Recovering/Resolving]
